FAERS Safety Report 7121494-7 (Version None)
Quarter: 2010Q4

REPORT INFORMATION
  Report Type: 
  Country: None (occurrence: None)
  Receive Date: 20101124
  Receipt Date: 20101115
  Transmission Date: 20110411
  Serious: Yes (Death, Life-Threatening, Hospitalization, Other)
  Sender: FDA-Public Use
  Company Number: SA-ELI_LILLY_AND_COMPANY-SA201011004449

PATIENT
  Age: 59 Year
  Sex: Female

DRUGS (5)
  1. OLANZAPINE [Suspect]
     Indication: MENTAL DISORDER
     Dosage: 10 MG, DAILY (1/D)
  2. OLANZAPINE [Suspect]
     Dosage: 15 MG, DAILY (1/D)
  3. OLANZAPINE [Suspect]
     Dosage: 20 MG, DAILY (1/D)
  4. DEPAKENE [Concomitant]
     Dosage: 1000 MG, DAILY (1/D)
  5. PROCYCLIDINE HYDROCHLORIDE 2MG TAB [Concomitant]
     Dosage: 15 MG, DAILY (1/D)

REACTIONS (6)
  - DRUG INTERACTION [None]
  - FALL [None]
  - INFECTION [None]
  - NEUROLEPTIC MALIGNANT SYNDROME [None]
  - RENAL FAILURE ACUTE [None]
  - RHABDOMYOLYSIS [None]
